FAERS Safety Report 7897234-0 (Version None)
Quarter: 2011Q4

REPORT INFORMATION
  Report Type: 
  Country: None (occurrence: None)
  Receive Date: 20111107
  Receipt Date: 20111027
  Transmission Date: 20120403
  Serious: Yes (Hospitalization)
  Sender: FDA-Public Use
  Company Number: KR-ELI_LILLY_AND_COMPANY-KR201109000255

PATIENT
  Age: 76 Year
  Sex: Female

DRUGS (1)
  1. HUMULIN N [Suspect]
     Indication: DIABETES MELLITUS
     Dosage: UNK
     Dates: start: 20110601

REACTIONS (3)
  - DIABETES MELLITUS [None]
  - NAUSEA [None]
  - INJECTION SITE HAEMATOMA [None]
